FAERS Safety Report 9924752 (Version 2)
Quarter: 2014Q1

REPORT INFORMATION
  Report Type: Spontaneous
  Country: US (occurrence: US)
  Receive Date: 20140226
  Receipt Date: 20140226
  Transmission Date: 20141002
  Serious: Yes (Disabling)
  Sender: FDA-Public Use
  Company Number: US-GE HEALTHCARE MEDICAL DIAGNOSTICS-OSCN-PR-0911S-0481

PATIENT
  Sex: Male

DRUGS (3)
  1. OMNISCAN [Suspect]
     Indication: FLUID RETENTION
     Route: 042
     Dates: start: 20041231, end: 20041231
  2. OMNISCAN [Suspect]
     Indication: RENAL VEIN THROMBOSIS
     Route: 042
     Dates: start: 20050107, end: 20050107
  3. OMNISCAN [Suspect]
     Route: 042
     Dates: start: 20050121, end: 20050121

REACTIONS (1)
  - Nephrogenic systemic fibrosis [Not Recovered/Not Resolved]
